FAERS Safety Report 23324752 (Version 1)
Quarter: 2023Q4

REPORT INFORMATION
  Report Type: Other
  Country: CN (occurrence: CN)
  Receive Date: 20231221
  Receipt Date: 20231221
  Transmission Date: 20240110
  Serious: Yes (Hospitalization)
  Sender: FDA-Public Use
  Company Number: CN-drreddys-LIT/CHN/23/0179791

PATIENT
  Age: 62 Year
  Sex: Male

DRUGS (2)
  1. CLOPIDOGREL [Suspect]
     Active Substance: CLOPIDOGREL BISULFATE
     Indication: Cerebral infarction
     Route: 048
  2. ASPIRIN [Suspect]
     Active Substance: ASPIRIN
     Indication: Cerebral infarction
     Route: 048

REACTIONS (3)
  - Carotid artery occlusion [Recovered/Resolved]
  - Carotid artery stenosis [Recovered/Resolved]
  - Drug ineffective [Unknown]
